FAERS Safety Report 7448548-X (Version None)
Quarter: 2011Q2

REPORT INFORMATION
  Report Type: 
  Country: None (occurrence: None)
  Receive Date: 20110429
  Receipt Date: 20100604
  Transmission Date: 20111010
  Serious: No
  Sender: FDA-Public Use
  Company Number: US-ASTRAZENECA-2010SE26020

PATIENT
  Sex: Female
  Weight: 117.9 kg

DRUGS (2)
  1. NEXIUM [Suspect]
     Indication: GASTROOESOPHAGEAL REFLUX DISEASE
     Route: 048
     Dates: start: 20100501, end: 20100501
  2. NEXIUM [Suspect]
     Route: 048
     Dates: start: 20100604

REACTIONS (4)
  - CHEST PAIN [None]
  - GASTROOESOPHAGEAL REFLUX DISEASE [None]
  - BURNING SENSATION [None]
  - DYSPEPSIA [None]
